FAERS Safety Report 23203769 (Version 1)
Quarter: 2023Q4

REPORT INFORMATION
  Report Type: Spontaneous
  Country: US (occurrence: US)
  Receive Date: 20231120
  Receipt Date: 20231120
  Transmission Date: 20240109
  Serious: Yes (Hospitalization, Other)
  Sender: FDA-Public Use
  Company Number: US-EPICPHARMA-US-2023EPCLIT01767

PATIENT
  Age: 52 Year

DRUGS (2)
  1. ESTRADIOL [Suspect]
     Active Substance: ESTRADIOL
     Indication: Transgender hormonal therapy
     Dosage: 100 MICROGRAMS EVERY 3 DAYS
     Route: 065
  2. CYPROTERONE [Suspect]
     Active Substance: CYPROTERONE
     Indication: Transgender hormonal therapy
     Dosage: 50 MG EVERY 12H FOR 10 YEARS
     Route: 065

REACTIONS (2)
  - Meningioma [Recovered/Resolved]
  - Product use in unapproved indication [Unknown]
